FAERS Safety Report 16357602 (Version 2)
Quarter: 2019Q3

REPORT INFORMATION
  Report Type: Report from Study
  Country: DE (occurrence: DE)
  Receive Date: 20190527
  Receipt Date: 20190711
  Transmission Date: 20191004
  Serious: Yes (Hospitalization, Other)
  Sender: FDA-Public Use
  Company Number: DE-TEVA-2019-DE-1055508

PATIENT
  Age: 30 Year
  Sex: Female

DRUGS (1)
  1. COPAXONE [Suspect]
     Active Substance: GLATIRAMER ACETATE
     Indication: MULTIPLE SCLEROSIS
     Dates: start: 20180108

REACTIONS (9)
  - Gastroenteritis norovirus [Recovered/Resolved]
  - Seizure [Recovered/Resolved]
  - Electroencephalogram abnormal [Unknown]
  - Panic attack [Recovered/Resolved]
  - Immunodeficiency [Recovered/Resolved]
  - Foaming at mouth [Recovered/Resolved]
  - Pyrexia [Recovered/Resolved]
  - Hyperventilation [Recovered/Resolved]
  - Influenza [Recovered/Resolved]

NARRATIVE: CASE EVENT DATE: 2019
